FAERS Safety Report 5977654-1 (Version None)
Quarter: 2008Q4

REPORT INFORMATION
  Report Type: 
  Country: None (occurrence: None)
  Receive Date: 20081201
  Receipt Date: 20081201
  Transmission Date: 20090506
  Serious: Yes (Other)
  Sender: FDA-Public Use
  Company Number: None

PATIENT
  Age: 9 Year
  Sex: Male
  Weight: 27.2158 kg

DRUGS (2)
  1. CONCERTA [Suspect]
     Indication: ATTENTION DEFICIT/HYPERACTIVITY DISORDER
     Dosage: 90MG QD PO
     Route: 048
     Dates: start: 20070408, end: 20081129
  2. CONCERTA [Suspect]
     Indication: OPPOSITIONAL DEFIANT DISORDER
     Dosage: 90MG QD PO
     Route: 048
     Dates: start: 20070408, end: 20081129

REACTIONS (4)
  - ABNORMAL BEHAVIOUR [None]
  - DISTURBANCE IN ATTENTION [None]
  - EDUCATIONAL PROBLEM [None]
  - INCORRECT DOSE ADMINISTERED [None]
